FAERS Safety Report 5939799-1 (Version None)
Quarter: 2008Q4

REPORT INFORMATION
  Report Type: 
  Country: None (occurrence: None)
  Receive Date: 20081031
  Receipt Date: 20081031
  Transmission Date: 20090506
  Serious: No
  Sender: FDA-Public Use
  Company Number: None

PATIENT
  Sex: Male
  Weight: 30.5 kg

DRUGS (5)
  1. GAMMAGARD LIQUID [Suspect]
     Indication: IMMUNODEFICIENCY
     Dosage: 15 GM TOTAL Q3 WEEKS IV DRIP
     Route: 041
     Dates: start: 20081007, end: 20081007
  2. GAMMAGARD LIQUID [Suspect]
     Dosage: 15 GM TOTAL Q3 WEEKS IV DRIP
     Route: 041
     Dates: start: 20081028, end: 20081028
  3. HOSPIRA LIFESHIELD SECONDARY IV SET [Concomitant]
  4. CONVERTIBLE PIN [Concomitant]
  5. CONVERTIBLE PIERCING PIN [Concomitant]

REACTIONS (1)
  - PRODUCT QUALITY ISSUE [None]
